FAERS Safety Report 4984907-2 (Version None)
Quarter: 2006Q2

REPORT INFORMATION
  Report Type: 
  Country: None (occurrence: None)
  Receive Date: 20060427
  Receipt Date: 20060424
  Transmission Date: 20061013
  Serious: Yes (Other)
  Sender: FDA-Public Use
  Company Number: US-GLAXOSMITHKLINE-A0603198A

PATIENT
  Age: 45 Year
  Sex: Female

DRUGS (2)
  1. TUMS E-X TABLETS, ASSORTED FRUIT [Suspect]
     Indication: STOMACH DISCOMFORT
     Route: 048
     Dates: start: 20051201
  2. BLOOD THINNER [Concomitant]

REACTIONS (4)
  - ARTHRITIS [None]
  - DEPENDENCE [None]
  - DIABETES MELLITUS [None]
  - DRY MOUTH [None]
